FAERS Safety Report 15779061 (Version 1)
Quarter: 2019Q1

REPORT INFORMATION
  Report Type: Spontaneous
  Country: CY (occurrence: CY)
  Receive Date: 20190101
  Receipt Date: 20190101
  Transmission Date: 20190417
  Serious: Yes (Other)
  Sender: FDA-Public Use
  Company Number: PHHY2018CY195277

PATIENT
  Age: 45 Year
  Sex: Female

DRUGS (2)
  1. DEFEROXAMINE [Suspect]
     Active Substance: DEFEROXAMINE\DEFEROXAMINE MESYLATE
     Dosage: 50 MG/KG, QD
     Route: 042
  2. DEFEROXAMINE [Suspect]
     Active Substance: DEFEROXAMINE\DEFEROXAMINE MESYLATE
     Indication: THALASSAEMIA
     Dosage: 50 MG/KG, QD, 2-3 DAYS/WEEK
     Route: 058

REACTIONS (7)
  - Injection site hypersensitivity [Unknown]
  - Drug intolerance [Unknown]
  - Pulmonary embolism [Unknown]
  - Arrhythmia [Unknown]
  - Infection [Unknown]
  - Pyrexia [Unknown]
  - Pulmonary thrombosis [Unknown]
